FAERS Safety Report 5306405-9 (Version None)
Quarter: 2007Q2

REPORT INFORMATION
  Report Type: 
  Country: None (occurrence: None)
  Receive Date: 20070419
  Receipt Date: 20070405
  Transmission Date: 20071010
  Serious: Yes (Other)
  Sender: FDA-Public Use
  Company Number: GXKR2007FR03352

PATIENT
  Sex: Male

DRUGS (1)
  1. SPIRAMYCIN + METRONIDAZOLE SANDOZ (NGX) (METRONIDAZOLE, SPIRAMYCIN) FI [Suspect]
     Dosage: 250 MG, 6QD, ORAL
     Route: 048

REACTIONS (10)
  - ASTHENIA [None]
  - DRUG DISPENSING ERROR [None]
  - FORMICATION [None]
  - GENITAL HAEMORRHAGE [None]
  - MEDICATION ERROR [None]
  - OVERDOSE [None]
  - PENILE HAEMORRHAGE [None]
  - PRURITUS [None]
  - RASH [None]
  - WRONG DRUG ADMINISTERED [None]
